FAERS Safety Report 18329904 (Version 1)
Quarter: 2020Q3

REPORT INFORMATION
  Report Type: Spontaneous
  Country: TW (occurrence: TW)
  Receive Date: 20200930
  Receipt Date: 20200930
  Transmission Date: 20201103
  Serious: Yes (Life-Threatening)
  Sender: FDA-Public Use
  Company Number: TW-PFIZER INC-2020371985

PATIENT
  Age: 57 Year
  Sex: Female

DRUGS (1)
  1. TAZOCIN [Suspect]
     Active Substance: PIPERACILLIN SODIUM\TAZOBACTAM SODIUM
     Dosage: 4.5 G, 3X/DAY
     Route: 042
     Dates: start: 20200821, end: 20200821

REACTIONS (7)
  - Stridor [Recovered/Resolved]
  - Altered state of consciousness [Recovered/Resolved]
  - Anaphylactic shock [Recovered/Resolved]
  - Hypoxia [Recovered/Resolved]
  - Erythema [Recovered/Resolved]
  - Cardiac arrest [Recovered/Resolved]
  - Hypotension [Recovered/Resolved]

NARRATIVE: CASE EVENT DATE: 20200821
